FAERS Safety Report 16835245 (Version 1)
Quarter: 2019Q3

REPORT INFORMATION
  Report Type: Spontaneous
  Country: US (occurrence: US)
  Receive Date: 20190920
  Receipt Date: 20190920
  Transmission Date: 20191005
  Serious: No
  Sender: FDA-Public Use
  Company Number: US-TEVA-2019-US-1109601

PATIENT
  Sex: Male

DRUGS (2)
  1. SUCRALFATE TABLETS, USP [Suspect]
     Active Substance: SUCRALFATE
     Indication: IRRITABLE BOWEL SYNDROME
  2. SUCRALFATE TABLETS, USP [Suspect]
     Active Substance: SUCRALFATE
     Indication: GASTROOESOPHAGEAL REFLUX DISEASE
     Route: 065
     Dates: start: 201908

REACTIONS (1)
  - Oral pain [Unknown]

NARRATIVE: CASE EVENT DATE: 201908
